FAERS Safety Report 14676343 (Version 1)
Quarter: 2018Q1

REPORT INFORMATION
  Report Type: Spontaneous
  Country: US (occurrence: US)
  Receive Date: 20180323
  Receipt Date: 20180323
  Transmission Date: 20180509
  Serious: No
  Sender: FDA-Public Use
  Company Number: None

PATIENT
  Age: 58 Year
  Sex: Female

DRUGS (27)
  1. ULORIC [Concomitant]
     Active Substance: FEBUXOSTAT
  2. PENTOXIFYLINE [Concomitant]
  3. CLONIDINE HCL [Concomitant]
     Active Substance: CLONIDINE HYDROCHLORIDE
  4. LAXIS [Concomitant]
  5. ZANAFLEX HCL [Concomitant]
  6. MORPHINE [Concomitant]
     Active Substance: MORPHINE
  7. COMBIVENT [Concomitant]
     Active Substance: ALBUTEROL SULFATE\IPRATROPIUM BROMIDE
  8. SEREVENT DISKUS [Concomitant]
     Active Substance: SALMETEROL XINAFOATE
  9. CLOPIDOGREL [Concomitant]
     Active Substance: CLOPIDOGREL BISULFATE
  10. ATENOLOL-CHLOROTHAL [Concomitant]
  11. FLUTICASONE PROPIONATE. [Concomitant]
     Active Substance: FLUTICASONE PROPIONATE
  12. TRULICITY [Suspect]
     Active Substance: DULAGLUTIDE
     Indication: DIABETES MELLITUS
     Dates: end: 201708
  13. ATORVASTATIN [Concomitant]
     Active Substance: ATORVASTATIN
  14. PHENERGAN [Concomitant]
     Active Substance: PROMETHAZINE HYDROCHLORIDE
  15. NOVOLOG [Concomitant]
     Active Substance: INSULIN ASPART
  16. MAXALT [Concomitant]
     Active Substance: RIZATRIPTAN BENZOATE
  17. HYDROCODONE [Concomitant]
     Active Substance: HYDROCODONE
  18. AMBIEN CR [Concomitant]
     Active Substance: ZOLPIDEM TARTRATE
  19. SPIRIVA [Concomitant]
     Active Substance: TIOTROPIUM BROMIDE MONOHYDRATE
  20. LEVEMIR [Concomitant]
     Active Substance: INSULIN DETEMIR
  21. VITAMIN D3 [Concomitant]
     Active Substance: CHOLECALCIFEROL
  22. KLOR-CON [Concomitant]
     Active Substance: POTASSIUM CHLORIDE
  23. BUPROPION HCL [Concomitant]
     Active Substance: BUPROPION HYDROCHLORIDE
  24. PROCHLORPERAZINE. [Concomitant]
     Active Substance: PROCHLORPERAZINE
  25. COMPAZINE [Concomitant]
     Active Substance: PROCHLORPERAZINE MALEATE
  26. OMEPRAZOLE DR [Concomitant]
     Active Substance: OMEPRAZOLE
  27. XANAX [Concomitant]
     Active Substance: ALPRAZOLAM

REACTIONS (1)
  - Alopecia [None]
